FAERS Safety Report 9844134 (Version 2)
Quarter: 2014Q1

REPORT INFORMATION
  Report Type: Spontaneous
  Country: US (occurrence: US)
  Receive Date: 20140127
  Receipt Date: 20140306
  Transmission Date: 20141002
  Serious: Yes (Hospitalization)
  Sender: FDA-Public Use
  Company Number: US-BIOGENIDEC-2014BI005480

PATIENT
  Age: 71 Year
  Sex: Female

DRUGS (1)
  1. TYSABRI [Suspect]
     Indication: MULTIPLE SCLEROSIS
     Route: 042
     Dates: start: 20120626, end: 20130930

REACTIONS (4)
  - JC virus test positive [Unknown]
  - Underweight [Unknown]
  - Lower limb fracture [Recovered/Resolved]
  - Limb crushing injury [Recovered/Resolved]
